FAERS Safety Report 16541948 (Version 2)
Quarter: 2019Q3

REPORT INFORMATION
  Report Type: Spontaneous
  Country: NL (occurrence: NL)
  Receive Date: 20190708
  Receipt Date: 20190730
  Transmission Date: 20191004
  Serious: Yes (Other)
  Sender: FDA-Public Use
  Company Number: NL-PFM-2019-07808

PATIENT

DRUGS (3)
  1. PROPRANOLOL [Suspect]
     Active Substance: PROPRANOLOL HYDROCHLORIDE
     Indication: MIGRAINE
     Dosage: UNK (MORE THAN 80 MG)
     Route: 065
  2. PROPRANOLOL [Suspect]
     Active Substance: PROPRANOLOL HYDROCHLORIDE
     Indication: HYPERTENSION
     Dosage: 40 MG, QD
     Route: 065
  3. PROPRANOLOL [Suspect]
     Active Substance: PROPRANOLOL HYDROCHLORIDE
     Indication: OFF LABEL USE

REACTIONS (12)
  - Fatigue [Unknown]
  - Product use issue [Unknown]
  - Brain injury [Unknown]
  - Insomnia [Unknown]
  - Product use in unapproved indication [Unknown]
  - Anosmia [Unknown]
  - Drug ineffective for unapproved indication [Unknown]
  - Rotator cuff syndrome [Recovered/Resolved]
  - Intervertebral disc disorder [Recovered/Resolved]
  - Exercise tolerance decreased [Unknown]
  - Off label use [Unknown]
  - Injury [Unknown]

NARRATIVE: CASE EVENT DATE: 2016
